FAERS Safety Report 7022348-7 (Version None)
Quarter: 2010Q3

REPORT INFORMATION
  Report Type: 
  Country: None (occurrence: None)
  Receive Date: 20100930
  Receipt Date: 20100920
  Transmission Date: 20110219
  Serious: Yes (Hospitalization, Other)
  Sender: FDA-Public Use
  Company Number: DE-ROCHE-718345

PATIENT
  Sex: Male
  Weight: 83 kg

DRUGS (10)
  1. AVASTIN [Suspect]
     Indication: COLON CANCER
     Route: 042
     Dates: start: 20100201, end: 20100720
  2. FLUOROURACIL [Suspect]
     Indication: COLON CANCER
     Route: 042
     Dates: start: 20070501, end: 20100720
  3. ALOXI [Concomitant]
     Route: 042
     Dates: start: 20100201, end: 20100720
  4. DOMPERIDON [Concomitant]
  5. DICLOFENAC SODIUM [Concomitant]
  6. PANTOPRAZOLE SODIUM [Concomitant]
  7. DEXAMETHASONE TAB [Concomitant]
  8. METAMIZOL [Concomitant]
  9. BUPRENORPHIN [Concomitant]
  10. OLICLINOMEL [Concomitant]

REACTIONS (3)
  - ABDOMINAL WALL ABSCESS [None]
  - DEMYELINATING POLYNEUROPATHY [None]
  - ENTEROCUTANEOUS FISTULA [None]
